FAERS Safety Report 8147809-9 (Version None)
Quarter: 2012Q1

REPORT INFORMATION
  Report Type: 
  Country: None (occurrence: None)
  Receive Date: 20120218
  Receipt Date: 20110318
  Transmission Date: 20120608
  Serious: No
  Sender: FDA-Public Use
  Company Number: US-ALLERGAN-1104030US

PATIENT
  Sex: Female

DRUGS (2)
  1. BOTULINUM TOXIN TYPE A [Suspect]
     Indication: SKIN COSMETIC PROCEDURE
     Dosage: 20 UNITS, SINGLE
     Dates: start: 20090601, end: 20090601
  2. IMMUNOSUPPRESSANTS [Concomitant]

REACTIONS (5)
  - GASTROINTESTINAL DISORDER [None]
  - MALAISE [None]
  - ABDOMINAL DISTENSION [None]
  - ANTIBODY TEST POSITIVE [None]
  - BLOOD POTASSIUM DECREASED [None]
